FAERS Safety Report 9137173 (Version 2)
Quarter: 2013Q1

REPORT INFORMATION
  Report Type: Spontaneous
  Country: US (occurrence: US)
  Receive Date: 20130304
  Receipt Date: 20130312
  Transmission Date: 20140127
  Serious: Yes (Hospitalization, Other)
  Sender: FDA-Public Use
  Company Number: CHPA2013US003721

PATIENT
  Age: 67 Year
  Sex: Female

DRUGS (7)
  1. HABITROL [Suspect]
     Indication: SMOKING CESSATION THERAPY
     Dosage: 14 MG, QD
     Route: 062
     Dates: start: 201301
  2. HABITROL [Suspect]
     Dosage: 21 MG, QD
     Route: 062
     Dates: start: 20121223, end: 201301
  3. HABITROL [Suspect]
     Dosage: UNK, UNK
     Route: 062
  4. LOSARTAN POTASSIUM [Concomitant]
     Indication: BLOOD PRESSURE ABNORMAL
     Dosage: 100 MG, QD
     Dates: start: 2012
  5. PRAVASTATIN [Concomitant]
     Indication: BLOOD CHOLESTEROL INCREASED
     Dosage: 40 MG, QD
     Dates: start: 2012
  6. BABY ASPIRIN [Concomitant]
     Dosage: 81 MG, QD
  7. LEVOTHYROXINE [Concomitant]
     Indication: THYROID DISORDER
     Dosage: 175 UG, QD

REACTIONS (12)
  - Coronary artery occlusion [Recovered/Resolved]
  - Atrial fibrillation [Recovered/Resolved]
  - Cholelithiasis [Recovered/Resolved]
  - Post procedural complication [Recovering/Resolving]
  - Sleep apnoea syndrome [Recovering/Resolving]
  - Initial insomnia [Unknown]
  - Chest pain [Recovered/Resolved]
  - Nervousness [Recovering/Resolving]
  - Asthenia [Recovered/Resolved]
  - Palpitations [Recovered/Resolved]
  - Abnormal dreams [Recovered/Resolved]
  - Incorrect drug administration duration [Unknown]
